FAERS Safety Report 26109846 (Version 1)
Quarter: 2025Q4

REPORT INFORMATION
  Report Type: Spontaneous
  Country: US (occurrence: US)
  Receive Date: 20251201
  Receipt Date: 20251201
  Transmission Date: 20260118
  Serious: No
  Sender: GLAUKOS
  Company Number: US-GLK-000704

PATIENT
  Age: 66 Year
  Sex: Female

DRUGS (1)
  1. IDOSE TR [Suspect]
     Active Substance: TRAVOPROST
     Indication: Product used for unknown indication
     Dosage: LEFT EYE (OS)
     Route: 047
     Dates: start: 20251014, end: 20251014

REACTIONS (4)
  - Herpes ophthalmic [Unknown]
  - Device dislocation [Unknown]
  - Corneal oedema [Unknown]
  - Medical device removal [Unknown]

NARRATIVE: CASE EVENT DATE: 20251104
